FAERS Safety Report 20469251 (Version 2)
Quarter: 2022Q2

REPORT INFORMATION
  Report Type: Report from Study
  Country: US (occurrence: US)
  Receive Date: 20220214
  Receipt Date: 20220513
  Transmission Date: 20220721
  Serious: No
  Sender: FDA-Public Use
  Company Number: US-PHARMACOVIGILANCE-US-KAD-21-00139

PATIENT
  Sex: Male
  Weight: 95.708 kg

DRUGS (1)
  1. REZUROCK [Suspect]
     Active Substance: BELUMOSUDIL
     Indication: Graft versus host disease
     Dosage: 200 MILLIGRAM, QD, AT BEDTIME WITH FOOD
     Route: 048
     Dates: start: 20211028

REACTIONS (3)
  - Blood test abnormal [Unknown]
  - Blood glucose fluctuation [Unknown]
  - Fatigue [Unknown]
